FAERS Safety Report 18049137 (Version 2)
Quarter: 2020Q3

REPORT INFORMATION
  Report Type: Spontaneous
  Country: US (occurrence: US)
  Receive Date: 20200721
  Receipt Date: 20200908
  Transmission Date: 20201103
  Serious: No
  Sender: FDA-Public Use
  Company Number: US-PFIZER INC-2020275999

PATIENT
  Age: 86 Year
  Sex: Male
  Weight: 74.84 kg

DRUGS (1)
  1. METHYLPREDNISOLONE. [Suspect]
     Active Substance: METHYLPREDNISOLONE
     Indication: COUGH
     Dosage: 6 TABLETS FIRST DAY, 5 NEXT, THEN 4, 3, 2,1 AFTER THAT

REACTIONS (3)
  - Off label use [Unknown]
  - Dysgeusia [Unknown]
  - Product use in unapproved indication [Unknown]
